FAERS Safety Report 24823804 (Version 1)
Quarter: 2025Q1

REPORT INFORMATION
  Report Type: Spontaneous
  Country: CN (occurrence: CN)
  Receive Date: 20250109
  Receipt Date: 20250109
  Transmission Date: 20250409
  Serious: Yes (Other)
  Sender: ASTELLAS
  Company Number: CN-GILEAD-2025-0698766

PATIENT
  Age: 73 Year
  Sex: Female
  Weight: 65 kg

DRUGS (2)
  1. AMBISOME [Suspect]
     Active Substance: AMPHOTERICIN B
     Indication: Product used for unknown indication
     Dosage: 200 MG, QD
     Route: 050
     Dates: start: 20240920, end: 20241007
  2. TRIPTERYGIUM WILFORDII ROOT [Suspect]
     Active Substance: TRIPTERYGIUM WILFORDII ROOT
     Indication: Symptomatic treatment
     Dosage: 20 MG, QD
     Route: 050
     Dates: start: 20240920, end: 20241003

REACTIONS (3)
  - Myelosuppression [Recovering/Resolving]
  - Tremor [Recovering/Resolving]
  - Hypoproteinaemia [Recovering/Resolving]

NARRATIVE: CASE EVENT DATE: 20241002
